FAERS Safety Report 4772446-3 (Version None)
Quarter: 2005Q3

REPORT INFORMATION
  Report Type: 
  Country: None (occurrence: None)
  Receive Date: 20050914
  Receipt Date: 20050906
  Transmission Date: 20060218
  Serious: Yes (Other)
  Sender: FDA-Public Use
  Company Number: THQ2005A00807

PATIENT
  Age: 70 Year

DRUGS (2)
  1. LEUPROLIDE ACETATE [Suspect]
     Dosage: 22.5 MG (22.5 MG, 1 IN 3 M)  INTRAMUSCULAR
     Route: 030
     Dates: start: 20041012, end: 20050110
  2. ZOLEDRONIC ACID [Suspect]
     Dosage: 4.0 MG/100 ML
     Dates: start: 20041018, end: 20050818

REACTIONS (2)
  - GINGIVAL PAIN [None]
  - OSTEONECROSIS [None]
